FAERS Safety Report 6467295-4 (Version None)
Quarter: 2009Q4

REPORT INFORMATION
  Report Type: 
  Country: None (occurrence: None)
  Receive Date: 20091202
  Receipt Date: 20091120
  Transmission Date: 20100525
  Serious: Yes (Hospitalization)
  Sender: FDA-Public Use
  Company Number: DE-GENENTECH-288785

PATIENT
  Sex: Female

DRUGS (4)
  1. BEVACIZUMAB [Suspect]
     Indication: BREAST CANCER
     Dosage: 1050 MG, Q3W
     Route: 042
     Dates: start: 20081229
  2. CYCLOPHOSPHAMIDE [Suspect]
     Indication: BREAST CANCER
     Dosage: 915 MG, Q3W
     Route: 042
     Dates: start: 20081229
  3. DOXORUBICIN [Suspect]
     Indication: BREAST CANCER
     Dosage: 91.5 MG, Q3W
     Route: 042
     Dates: start: 20081229
  4. DOCETAXEL [Suspect]
     Indication: BREAST CANCER
     Dosage: 137.25 MG, Q3W
     Route: 042
     Dates: start: 20081229

REACTIONS (1)
  - ATRIAL FIBRILLATION [None]
